FAERS Safety Report 9958868 (Version 1)
Quarter: 2014Q1

REPORT INFORMATION
  Report Type: Report from Study
  Country: US (occurrence: US)
  Receive Date: 20140305
  Receipt Date: 20140305
  Transmission Date: 20141002
  Serious: No
  Sender: FDA-Public Use
  Company Number: US-ABBVIE-13P-163-1103873-00

PATIENT
  Age: 38 Year
  Sex: Female

DRUGS (10)
  1. HUMIRA [Suspect]
     Indication: CROHN^S DISEASE
     Dosage: LOADING DOSE
     Dates: start: 20130530
  2. METOPROLOL [Concomitant]
     Indication: HYPERTENSION
  3. LISINOPRIL [Concomitant]
     Indication: HYPERTENSION
  4. AMLODIPINE [Concomitant]
     Indication: HYPERTENSION
  5. PENTASA [Concomitant]
     Indication: CROHN^S DISEASE
  6. IMURAN [Concomitant]
     Indication: CROHN^S DISEASE
  7. UNKNOWN MEDICATION [Concomitant]
     Indication: CROHN^S DISEASE
  8. CELEXA [Concomitant]
     Indication: ANXIETY
  9. ZOFRAN [Concomitant]
     Indication: NAUSEA
  10. OXYCODONE [Concomitant]
     Indication: PROCTALGIA

REACTIONS (1)
  - Sinusitis [Not Recovered/Not Resolved]
